FAERS Safety Report 25622610 (Version 1)
Quarter: 2025Q3

REPORT INFORMATION
  Report Type: Spontaneous
  Country: US (occurrence: US)
  Receive Date: 20250730
  Receipt Date: 20250730
  Transmission Date: 20251021
  Serious: Yes (Other)
  Sender: NOVO NORDISK
  Company Number: US-NOVOPROD-1486593

PATIENT
  Sex: Female

DRUGS (1)
  1. WEGOVY [Suspect]
     Active Substance: SEMAGLUTIDE
     Indication: Weight control
     Dosage: 1.7 MG, QW
     Dates: start: 2024, end: 202502

REACTIONS (4)
  - Graves^ disease [Unknown]
  - Polycystic ovarian syndrome [Unknown]
  - Endometriosis [Unknown]
  - Glucose tolerance impaired [Unknown]
